FAERS Safety Report 5891321-4 (Version None)
Quarter: 2008Q3

REPORT INFORMATION
  Report Type: 
  Country: None (occurrence: None)
  Receive Date: 20080918
  Receipt Date: 20080918
  Transmission Date: 20090109
  Serious: No
  Sender: FDA-Public Use
  Company Number: None

PATIENT
  Age: 70 Year
  Sex: Female
  Weight: 62.5964 kg

DRUGS (2)
  1. MACROBID [Suspect]
     Indication: CATHETER PLACEMENT
     Dosage: 100MG TID PO
     Route: 048
     Dates: start: 20080801, end: 20080818
  2. MACROBID [Suspect]
     Indication: NEUROGENIC BLADDER
     Dosage: 100MG TID PO
     Route: 048
     Dates: start: 20080801, end: 20080818

REACTIONS (5)
  - ARTHRALGIA [None]
  - ARTHROPATHY [None]
  - DIZZINESS [None]
  - JOINT RANGE OF MOTION DECREASED [None]
  - MYALGIA [None]
